FAERS Safety Report 8291911-8 (Version None)
Quarter: 2012Q2

REPORT INFORMATION
  Report Type: 
  Country: None (occurrence: None)
  Receive Date: 20120417
  Receipt Date: 20110909
  Transmission Date: 20120825
  Serious: No
  Sender: FDA-Public Use
  Company Number: US-ASTRAZENECA-2011SE54562

PATIENT
  Sex: Male

DRUGS (18)
  1. ZETIA [Concomitant]
  2. TIZANIDINE HCL [Concomitant]
  3. FISH OIL [Concomitant]
  4. NEXIUM [Suspect]
     Route: 048
  5. VITAMIN D [Suspect]
     Route: 065
  6. ASPIRIN [Concomitant]
  7. MIRALAX [Concomitant]
  8. TOPROL-XL [Suspect]
     Route: 048
  9. NORCO [Concomitant]
  10. PERCOCET [Concomitant]
     Indication: PAIN
  11. MULTI-VITAMINS [Concomitant]
  12. VITAMIN D [Suspect]
     Route: 065
  13. LIPITOR [Concomitant]
  14. XANAX [Concomitant]
  15. METAMUCIL-2 [Concomitant]
  16. LEXAPRO [Concomitant]
  17. VOLTAREN [Concomitant]
     Indication: ARTHRALGIA
  18. BENADRYL [Concomitant]

REACTIONS (1)
  - VITAMIN D INCREASED [None]
